FAERS Safety Report 16696206 (Version 1)
Quarter: 2019Q3

REPORT INFORMATION
  Report Type: Spontaneous
  Country: GB (occurrence: GB)
  Receive Date: 20190813
  Receipt Date: 20190813
  Transmission Date: 20191004
  Serious: Yes (Congenital Anomaly, Other)
  Sender: FDA-Public Use
  Company Number: GB-AUROBINDO-AUR-APL-2019-052766

PATIENT

DRUGS (1)
  1. BISOPROLOL [Suspect]
     Active Substance: BISOPROLOL
     Indication: SUPRAVENTRICULAR TACHYCARDIA
     Dosage: 2.5 MILLIGRAM, DAILY
     Route: 064
     Dates: start: 20190417

REACTIONS (2)
  - Foetal exposure during pregnancy [Unknown]
  - Neonatal deafness [Not Recovered/Not Resolved]

NARRATIVE: CASE EVENT DATE: 20190517
